FAERS Safety Report 8854894 (Version 1)
Quarter: 2012Q4

REPORT INFORMATION
  Report Type: 
  Country: US (occurrence: US)
  Receive Date: 20121023
  Receipt Date: 20121023
  Transmission Date: 20130627
  Serious: No
  Sender: FDA-Public Use
  Company Number: US-B.I. PHARMACEUTICALS,INC./RIDGEFIELD-2012-BP-25305BP

PATIENT
  Age: 66 Year
  Sex: Female
  Weight: 159 kg

DRUGS (6)
  1. SPIRIVA [Suspect]
     Indication: CHRONIC OBSTRUCTIVE PULMONARY DISEASE
     Dosage: 18 mcg
     Route: 055
     Dates: start: 201203
  2. FUROSEMIDE [Concomitant]
     Indication: SWELLING
     Dosage: 25 mg
     Route: 048
     Dates: start: 2007
  3. PROVERA [Concomitant]
     Indication: MENOPAUSE
     Dosage: 10 mg
     Route: 048
     Dates: start: 201206
  4. PREVACID [Concomitant]
     Indication: CHRONIC OBSTRUCTIVE PULMONARY DISEASE
     Dosage: 30 mg
     Route: 048
     Dates: start: 201203
  5. LOSARTAN [Concomitant]
     Indication: HYPERTENSION
     Dosage: 100 mg
     Route: 048
     Dates: start: 2007
  6. ADVAIR [Concomitant]
     Indication: CHRONIC OBSTRUCTIVE PULMONARY DISEASE
     Dosage: 2 puf
     Route: 055
     Dates: start: 2007

REACTIONS (4)
  - Dysphonia [Not Recovered/Not Resolved]
  - Drug ineffective [Recovered/Resolved]
  - Product quality issue [Unknown]
  - Product quality issue [Unknown]
